FAERS Safety Report 4312341-7 (Version None)
Quarter: 2004Q1

REPORT INFORMATION
  Report Type: 
  Country: None (occurrence: None)
  Receive Date: 20040304
  Receipt Date: 20040304
  Transmission Date: 20041129
  Serious: Yes (Other)
  Sender: FDA-Public Use
  Company Number: None

PATIENT
  Age: 8 Month
  Sex: Male
  Weight: 9.2987 kg

DRUGS (3)
  1. TRIAMINIC COLD AND COUGH MEDICINE MADE BY NOVARTIS, INC. [Suspect]
     Indication: NASOPHARYNGITIS
     Dosage: 1/4 TSPN. EVERY 4 HOURS FOR 2 1/2 DAYS BY MOUTH
     Route: 048
  2. TRIAMINIC COLD AND COUGH MEDICINE MADE BY NOVARTIS, INC. [Suspect]
     Indication: RESPIRATORY DISORDER
     Dosage: 1/4 TSPN. EVERY 4 HOURS FOR 2 1/2 DAYS BY MOUTH
     Route: 048
  3. TRIAMINIC SRT [Suspect]

REACTIONS (6)
  - BODY TEMPERATURE DECREASED [None]
  - COLD SWEAT [None]
  - HYPERHIDROSIS [None]
  - PSYCHOMOTOR HYPERACTIVITY [None]
  - SHOCK [None]
  - THIRST [None]
